FAERS Safety Report 7556916-0 (Version None)
Quarter: 2011Q2

REPORT INFORMATION
  Report Type: 
  Country: None (occurrence: None)
  Receive Date: 20110620
  Receipt Date: 20110606
  Transmission Date: 20111010
  Serious: Yes (Other)
  Sender: FDA-Public Use
  Company Number: PHHY2010CA28355

PATIENT
  Sex: Female

DRUGS (12)
  1. COLACE [Concomitant]
  2. ADALAT [Concomitant]
  3. ZOLEDRONIC ACID [Suspect]
     Indication: OSTEOPOROSIS
     Route: 042
     Dates: start: 20090623
  4. LACTULOSE [Concomitant]
  5. DOMPERIDONE [Concomitant]
  6. ACTONEL [Concomitant]
  7. CALCIUM CARBONATE [Concomitant]
  8. AMERGE [Concomitant]
  9. TYLENOL-500 [Concomitant]
  10. ZOLEDRONIC ACID [Suspect]
     Route: 042
     Dates: start: 20100629
  11. NEXIUM [Concomitant]
  12. VITAMIN D [Concomitant]

REACTIONS (6)
  - JAW DISORDER [None]
  - BACK PAIN [None]
  - DRUG INEFFECTIVE [None]
  - ARTHRALGIA [None]
  - TOOTH DISORDER [None]
  - BRUXISM [None]
